FAERS Safety Report 4475185-1 (Version None)
Quarter: 2004Q4

REPORT INFORMATION
  Report Type: 
  Country: None (occurrence: None)
  Receive Date: 20041015
  Receipt Date: 20040913
  Transmission Date: 20050328
  Serious: Yes (Hospitalization, Other)
  Sender: FDA-Public Use
  Company Number: US-BRISTOL-MYERS SQUIBB COMPANY-12700266

PATIENT
  Age: 51 Year
  Sex: Male
  Weight: 69 kg

DRUGS (4)
  1. COUMADIN [Suspect]
     Indication: MYOCARDIAL INFARCTION
     Route: 048
     Dates: start: 20020605, end: 20020718
  2. COUMADIN [Suspect]
     Indication: STENT PLACEMENT
     Route: 048
     Dates: start: 20020605, end: 20020718
  3. LOPRESSOR [Suspect]
     Dosage: INITIATED SAME TIME AS COUMADIN
     Dates: start: 20020601, end: 20020718
  4. PLAVIX [Suspect]
     Dosage: INITIATED SAME TIME AS COUMADIN
     Dates: start: 20020601, end: 20020718

REACTIONS (7)
  - BIPOLAR I DISORDER [None]
  - CEREBRAL HAEMORRHAGE [None]
  - HYPOAESTHESIA [None]
  - INTERNATIONAL NORMALISED RATIO INCREASED [None]
  - MOUTH HAEMORRHAGE [None]
  - PARALYSIS [None]
  - SUICIDAL IDEATION [None]
